FAERS Safety Report 4905137-6 (Version None)
Quarter: 2006Q1

REPORT INFORMATION
  Report Type: 
  Country: None (occurrence: None)
  Receive Date: 20060208
  Receipt Date: 20051118
  Transmission Date: 20060701
  Serious: No
  Sender: FDA-Public Use
  Company Number: US-GLAXOSMITHKLINE-A0582909A

PATIENT
  Age: 74 Year
  Sex: Female

DRUGS (5)
  1. PAROXETINE HCL [Suspect]
     Indication: DEPRESSION
     Dosage: 20MG PER DAY
     Route: 048
  2. SYNTHROID [Concomitant]
  3. AMBIEN [Concomitant]
  4. B12 [Concomitant]
  5. PAXIL [Concomitant]

REACTIONS (1)
  - DRUG INEFFECTIVE [None]
